FAERS Safety Report 24582229 (Version 11)
Quarter: 2025Q3

REPORT INFORMATION
  Report Type: Spontaneous
  Country: JP (occurrence: JP)
  Receive Date: 20241105
  Receipt Date: 20250919
  Transmission Date: 20251020
  Serious: Yes (Hospitalization, Other)
  Sender: ALEXION PHARMACEUTICALS
  Company Number: JP-ASTRAZENECA-240081697_010520_P_1

PATIENT
  Age: 78 Year
  Sex: Female
  Weight: 45 kg

DRUGS (37)
  1. FASLODEX [Suspect]
     Active Substance: FULVESTRANT
     Indication: Breast cancer
  2. FASLODEX [Suspect]
     Active Substance: FULVESTRANT
  3. FASLODEX [Suspect]
     Active Substance: FULVESTRANT
  4. FASLODEX [Suspect]
     Active Substance: FULVESTRANT
  5. FASLODEX [Suspect]
     Active Substance: FULVESTRANT
  6. FASLODEX [Suspect]
     Active Substance: FULVESTRANT
     Route: 065
  7. TRUQAP [Suspect]
     Active Substance: CAPIVASERTIB
     Indication: Breast cancer
     Dosage: 400 MILLIGRAM, BID
     Dates: start: 20240710, end: 20240722
  8. TRUQAP [Suspect]
     Active Substance: CAPIVASERTIB
     Dosage: DOSE UNKNOWN, 4 DAYS IN A ROW, FOLLOWED BY 3 DAYS OFF.
     Dates: start: 20240906
  9. TRUQAP [Suspect]
     Active Substance: CAPIVASERTIB
     Route: 065
     Dates: start: 20240710, end: 20240722
  10. TAMOXIFEN [Concomitant]
     Active Substance: TAMOXIFEN
     Indication: Breast cancer
     Route: 065
  11. TOREMIFENE [Concomitant]
     Active Substance: TOREMIFENE
     Indication: Breast cancer
     Route: 065
  12. AFINITOR [Concomitant]
     Active Substance: EVEROLIMUS
     Indication: Breast cancer
     Route: 065
  13. AROMASIN [Concomitant]
     Active Substance: EXEMESTANE
     Indication: Breast cancer
     Route: 065
  14. DENOSUMAB [Concomitant]
     Active Substance: DENOSUMAB
     Indication: Breast cancer
  15. IBRANCE [Concomitant]
     Active Substance: PALBOCICLIB
     Indication: Breast cancer
  16. VERZENIO [Concomitant]
     Active Substance: ABEMACICLIB
     Indication: Breast cancer
  17. PACLITAXEL [Concomitant]
     Active Substance: PACLITAXEL
     Indication: Breast cancer
     Route: 065
  18. AVASTIN [Concomitant]
     Active Substance: BEVACIZUMAB
     Indication: Breast cancer
     Route: 065
  19. HALAVEN [Concomitant]
     Active Substance: ERIBULIN MESYLATE
     Indication: Breast cancer
     Route: 065
  20. HALAVEN [Concomitant]
     Active Substance: ERIBULIN MESYLATE
     Route: 065
  21. HALAVEN [Concomitant]
     Active Substance: ERIBULIN MESYLATE
     Route: 065
  22. MIYA-BM [Concomitant]
     Active Substance: CLOSTRIDIUM BUTYRICUM SPORES STRAIN M-55
     Route: 065
  23. MIYA-BM [Concomitant]
     Active Substance: CLOSTRIDIUM BUTYRICUM SPORES STRAIN M-55
  24. LEVOTHYROXINE [Concomitant]
     Active Substance: LEVOTHYROXINE
     Route: 065
  25. PREDNISOLONE [Concomitant]
     Active Substance: PREDNISOLONE
     Route: 065
  26. ROSUVASTATIN [Concomitant]
     Active Substance: ROSUVASTATIN
     Route: 065
  27. ROSUVASTATIN [Concomitant]
     Active Substance: ROSUVASTATIN
  28. VALSARTAN [Concomitant]
     Active Substance: VALSARTAN
     Route: 065
  29. VALSARTAN [Concomitant]
     Active Substance: VALSARTAN
  30. TRICHLORMETHIAZIDE [Concomitant]
     Active Substance: TRICHLORMETHIAZIDE
     Route: 065
  31. TRICHLORMETHIAZIDE [Concomitant]
     Active Substance: TRICHLORMETHIAZIDE
  32. PROPIVERINE [Concomitant]
     Active Substance: PROPIVERINE
     Route: 065
  33. PROPIVERINE [Concomitant]
     Active Substance: PROPIVERINE
  34. LANSOPRAZOLE [Concomitant]
     Active Substance: LANSOPRAZOLE
     Route: 065
  35. LEVOTHYROXINE SODIUM [Concomitant]
     Active Substance: LEVOTHYROXINE SODIUM
  36. PREDNISOLONE [Concomitant]
     Active Substance: PREDNISOLONE
  37. LANSOPRAZOLE [Concomitant]
     Active Substance: LANSOPRAZOLE

REACTIONS (13)
  - Hyperglycaemia [Recovered/Resolved]
  - Erythema multiforme [Recovered/Resolved]
  - Acute kidney injury [Recovered/Resolved]
  - Blood pressure decreased [Recovered/Resolved]
  - Interstitial lung disease [Recovered/Resolved]
  - Decreased appetite [Recovered/Resolved]
  - Oral disorder [Unknown]
  - Malaise [Recovering/Resolving]
  - Vomiting [Recovering/Resolving]
  - Pyrexia [Recovered/Resolved]
  - Dehydration [Recovered/Resolved]
  - Rash [Recovering/Resolving]
  - Stomatitis [Recovering/Resolving]

NARRATIVE: CASE EVENT DATE: 20240721
